FAERS Safety Report 11874895 (Version 1)
Quarter: 2015Q4

REPORT INFORMATION
  Report Type: Spontaneous
  Country: US (occurrence: None)
  Receive Date: 20151228
  Receipt Date: 20151228
  Transmission Date: 20160305
  Serious: Yes (Hospitalization)
  Sender: FDA-Public Use
  Company Number: None

PATIENT
  Age: 63 Year
  Sex: Male
  Weight: 94.5 kg

DRUGS (1)
  1. TIOTROPIUM [Suspect]
     Active Substance: TIOTROPIUM
     Indication: CHRONIC OBSTRUCTIVE PULMONARY DISEASE
     Route: 055
     Dates: start: 20151202, end: 20151205

REACTIONS (6)
  - Anaphylactic reaction [None]
  - Paraesthesia oral [None]
  - Chronic obstructive pulmonary disease [None]
  - Throat tightness [None]
  - Periorbital oedema [None]
  - Angioedema [None]

NARRATIVE: CASE EVENT DATE: 20151205
